FAERS Safety Report 8914504 (Version 3)
Quarter: 2013Q1

REPORT INFORMATION
  Report Type: Spontaneous
  Country: DE (occurrence: DE)
  Receive Date: 20121116
  Receipt Date: 20130122
  Transmission Date: 20140127
  Serious: Yes (Hospitalization)
  Sender: FDA-Public Use
  Company Number: DE-UCBSA-070102

PATIENT
  Age: 79 Year
  Sex: Male

DRUGS (6)
  1. KEPPRA [Suspect]
     Indication: EPILEPSY
     Dosage: 250 MG IN THE MORNING AND 250 MG IN THE EVENING
     Dates: start: 20121010, end: 2012
  2. KEPPRA [Suspect]
     Indication: EPILEPSY
     Dates: start: 2012, end: 2012
  3. AMITRIPTYLINE [Concomitant]
     Dosage: UNKNOWN DOSE
  4. PLAVIX [Concomitant]
     Dosage: 1 IN THE MORNING
     Dates: start: 20120823
  5. RANIBETA [Concomitant]
     Dosage: DAILY DOSE:300 MG , 1/2 IN THE MORNING 1/2 IN EVENING
     Dates: start: 20120823
  6. PANTOZOL [Concomitant]
     Dosage: 1/2-0-1/2

REACTIONS (10)
  - Syncope [Recovered/Resolved]
  - Presyncope [Unknown]
  - Convulsion [Unknown]
  - Petit mal epilepsy [Unknown]
  - Dementia Alzheimer^s type [Unknown]
  - Loss of consciousness [Unknown]
  - Gastritis [Recovering/Resolving]
  - Dizziness [Unknown]
  - Acquired diaphragmatic eventration [Unknown]
  - Agitation [Unknown]
